FAERS Safety Report 18297063 (Version 1)
Quarter: 2020Q3

REPORT INFORMATION
  Report Type: Spontaneous
  Country: US (occurrence: US)
  Receive Date: 20200922
  Receipt Date: 20200922
  Transmission Date: 20201103
  Serious: Yes (Other)
  Sender: FDA-Public Use
  Company Number: US-AKRON, INC.-2091033

PATIENT
  Age: 12 Month
  Sex: Male

DRUGS (1)
  1. FERROUS SULFATE IRON SUPPLIMENT DROPS [Suspect]
     Active Substance: FERROUS SULFATE
     Route: 048
     Dates: start: 20200907, end: 20200907

REACTIONS (2)
  - Medication error [Recovered/Resolved]
  - Vomiting [Recovered/Resolved]

NARRATIVE: CASE EVENT DATE: 20200907
